FAERS Safety Report 25634283 (Version 1)
Quarter: 2025Q3

REPORT INFORMATION
  Report Type: Report from Study
  Country: CN (occurrence: CN)
  Receive Date: 20250801
  Receipt Date: 20250801
  Transmission Date: 20251021
  Serious: Yes (Hospitalization, Other)
  Sender: JOHNSON AND JOHNSON
  Company Number: CN-JNJFOC-20250733297

PATIENT

DRUGS (2)
  1. INFLIXIMAB [Suspect]
     Active Substance: INFLIXIMAB
     Indication: Crohn^s disease
     Route: 041
  2. USTEKINUMAB [Suspect]
     Active Substance: USTEKINUMAB
     Indication: Crohn^s disease
     Route: 058

REACTIONS (10)
  - Bronchopulmonary aspergillosis [Unknown]
  - Herpes simplex [Unknown]
  - Pneumonia bacterial [Unknown]
  - Lupus-like syndrome [Unknown]
  - Papillary thyroid cancer [Unknown]
  - Breast cancer [Unknown]
  - Arthritis enteropathic [Unknown]
  - Psoriasis [Unknown]
  - Headache [Unknown]
  - Infusion related reaction [Unknown]
